FAERS Safety Report 9405490 (Version 4)
Quarter: 2013Q3

REPORT INFORMATION
  Report Type: Spontaneous
  Country: None (occurrence: None)
  Receive Date: 20130715
  Receipt Date: 20130813
  Transmission Date: 20140515
  Serious: Yes (Death, Other)
  Sender: FDA-Public Use
  Company Number: 2013-1145

PATIENT
  Age: 55 Year
  Sex: Female

DRUGS (11)
  1. KYPROLIS [Suspect]
     Indication: PLASMA CELL MYELOMA
     Dosage: (DAY 1, 2),INTRAVENOUS
     Route: 042
     Dates: start: 20130529, end: 20130530
  2. LENALIDOMIDE(LENALIDOMIDE) (LENALIDOMIDE) [Concomitant]
  3. PREDNISONE(PREDNISONE) (PREDNISONE) [Concomitant]
  4. OXALIPLATIN(OXALIPLATIN) (INJECTION FOR INFUSION) (OXALIPLATIN) [Concomitant]
  5. DEXAMETHASONE(DEXAMETHASONE) (INJECTION FOR INFUSION) (DEXAMETHASONE) [Concomitant]
  6. CYCLOPHOSPHAMIDE(CYCLOPHOSPHAMIDE) (CYCLOPHOSPHAMIDE) [Concomitant]
  7. VP16(ETOPOSIDE) (ETOPOSIDE) [Concomitant]
  8. SOMATOSTATIN(SOMATOSTATIN) (SOMATOSTATIN) [Concomitant]
  9. GABEXATE(GABEXATE) (GABEXATE) [Concomitant]
  10. FAT EMULSION(FATS NOS) (FATS NOS) [Concomitant]
  11. COMPOUND AMINO ACID(GLYCINE) (GLYCINE) [Concomitant]

REACTIONS (12)
  - Dizziness [None]
  - Nausea [None]
  - Vomiting [None]
  - Dyspnoea [None]
  - Oral herpes [None]
  - Lung infection [None]
  - Soft tissue mass [None]
  - Cardiac failure [None]
  - Skin necrosis [None]
  - Epilepsy [None]
  - Bone marrow failure [None]
  - Blood pressure increased [None]
